FAERS Safety Report 24154297 (Version 1)
Quarter: 2024Q3

REPORT INFORMATION
  Report Type: Spontaneous
  Country: US (occurrence: US)
  Receive Date: 20240730
  Receipt Date: 20240730
  Transmission Date: 20241017
  Serious: No
  Sender: DR REDDYS
  Company Number: US-E2BLSMVVAL-SPO/USA/24/0010716

PATIENT
  Age: 19 Year
  Sex: Female

DRUGS (1)
  1. ACCUTANE [Suspect]
     Active Substance: ISOTRETINOIN
     Indication: Product used for unknown indication
     Route: 065

REACTIONS (11)
  - Dry eye [Recovered/Resolved with Sequelae]
  - Ocular hyperaemia [Unknown]
  - Irritability [Unknown]
  - Dry skin [Unknown]
  - Back pain [Unknown]
  - Visual impairment [Unknown]
  - Lip dry [Unknown]
  - Foreign body sensation in eyes [Unknown]
  - Condition aggravated [Unknown]
  - Overdose [Unknown]
  - Agitation [Unknown]
